FAERS Safety Report 24823243 (Version 2)
Quarter: 2025Q3

REPORT INFORMATION
  Report Type: Spontaneous
  Country: BR (occurrence: BR)
  Receive Date: 20250109
  Receipt Date: 20250803
  Transmission Date: 20251021
  Serious: Yes (Other)
  Sender: ALEXION PHARMACEUTICALS
  Company Number: BR-AstraZeneca-CH-00709572A

PATIENT
  Age: 39 Year

DRUGS (1)
  1. OLAPARIB [Suspect]
     Active Substance: OLAPARIB

REACTIONS (2)
  - Pancreatitis [Unknown]
  - Pleural effusion [Unknown]
